FAERS Safety Report 22255506 (Version 2)
Quarter: 2023Q2

REPORT INFORMATION
  Report Type: Spontaneous
  Country: US (occurrence: US)
  Receive Date: 20230426
  Receipt Date: 20230503
  Transmission Date: 20230721
  Serious: Yes (Life-Threatening, Hospitalization, Other)
  Sender: FDA-Public Use
  Company Number: US-AMGEN-USASP2023069917

PATIENT
  Age: 31 Year
  Sex: Female

DRUGS (2)
  1. ADALIMUMAB [Suspect]
     Active Substance: ADALIMUMAB
     Indication: Crohn^s disease
     Dosage: UNK
     Route: 065
  2. AZATHIOPRINE [Concomitant]
     Active Substance: AZATHIOPRINE
     Indication: Crohn^s disease
     Dosage: UNK
     Route: 065

REACTIONS (13)
  - Respiratory failure [Unknown]
  - Multiple organ dysfunction syndrome [Unknown]
  - Acute kidney injury [Unknown]
  - Premature delivery [Unknown]
  - Leukocytosis [Unknown]
  - Anaplastic large-cell lymphoma [Unknown]
  - Atrial fibrillation [Unknown]
  - Septic shock [Unknown]
  - Sepsis [Unknown]
  - Pneumonia [Unknown]
  - Pyrexia [Unknown]
  - Anal fistula [Unknown]
  - Maternal exposure during pregnancy [Unknown]
